FAERS Safety Report 4707419-X (Version None)
Quarter: 2005Q3

REPORT INFORMATION
  Report Type: 
  Country: None (occurrence: None)
  Receive Date: 20050706
  Receipt Date: 20050629
  Transmission Date: 20060218
  Serious: Yes (Hospitalization)
  Sender: FDA-Public Use
  Company Number: 2005AP03568

PATIENT
  Age: 25526 Day
  Sex: Male

DRUGS (6)
  1. ATENOLOL [Suspect]
     Indication: HYPERTENSION
     Route: 048
     Dates: start: 19980916, end: 19981027
  2. ATENOLOL [Suspect]
     Route: 048
     Dates: start: 19981028, end: 19981201
  3. PLENDIL [Suspect]
     Indication: HYPERTENSION
     Dates: start: 19981201
  4. COENZYME Q10 [Concomitant]
     Route: 048
     Dates: start: 19980401
  5. RINEXIN [Concomitant]
     Route: 048
     Dates: start: 19981123, end: 19981204
  6. VIAGRA [Concomitant]
     Dates: start: 19981027, end: 19990919

REACTIONS (6)
  - ASTHMA [None]
  - ATRIAL FIBRILLATION [None]
  - CHEST PAIN [None]
  - INFECTION [None]
  - OBSTRUCTION [None]
  - PNEUMONIA [None]
